FAERS Safety Report 10441807 (Version 1)
Quarter: 2014Q3

REPORT INFORMATION
  Report Type: Other
  Country: FR (occurrence: FR)
  Receive Date: 20140909
  Receipt Date: 20140909
  Transmission Date: 20150326
  Serious: Yes (Other)
  Sender: FDA-Public Use
  Company Number: FR-MYLAN-2014M1002649

PATIENT

DRUGS (2)
  1. IBUPROFENE MYLAN 400 MG, COMPRIM? PELLICUL? [Suspect]
     Active Substance: IBUPROFEN
     Dosage: 400 MG, UNK
     Route: 048
     Dates: start: 20140818, end: 20140818
  2. IBUPROFENE MYLAN 400 MG, COMPRIM? PELLICUL? [Suspect]
     Active Substance: IBUPROFEN
     Indication: BACK PAIN
     Dosage: 400 MG, UNK
     Route: 048
     Dates: start: 20140715, end: 20140715

REACTIONS (3)
  - Rash [None]
  - Lip oedema [Recovered/Resolved]
  - Rash [Recovered/Resolved]

NARRATIVE: CASE EVENT DATE: 20140715
